FAERS Safety Report 21264544 (Version 1)
Quarter: 2022Q3

REPORT INFORMATION
  Report Type: Spontaneous
  Country: US (occurrence: None)
  Receive Date: 20220826
  Receipt Date: 20220826
  Transmission Date: 20221026
  Serious: No
  Sender: FDA-Public Use
  Company Number: None

PATIENT
  Age: 44 Year
  Sex: Female
  Weight: 95.07 kg

DRUGS (19)
  1. CAPECITABINE [Suspect]
     Active Substance: CAPECITABINE
     Indication: Rectosigmoid cancer
     Dosage: FREQUENCY : TWICE A DAY;?
     Route: 048
     Dates: start: 202206
  2. ALBUTEROL [Concomitant]
     Active Substance: ALBUTEROL
  3. AVASTIN [Concomitant]
     Active Substance: BEVACIZUMAB
  4. VITAMINS [Concomitant]
     Active Substance: VITAMINS
  5. IBUPROFEN [Concomitant]
     Active Substance: IBUPROFEN
  6. IRON [Concomitant]
     Active Substance: IRON
  7. DIPHENHYDRAMINE [Concomitant]
     Active Substance: DIPHENHYDRAMINE
  8. FAMOTIDINE [Concomitant]
     Active Substance: FAMOTIDINE
  9. GABAPENTIN [Concomitant]
     Active Substance: GABAPENTIN
  10. SENNA [Concomitant]
     Active Substance: SENNA LEAF\SENNOSIDES\SENNOSIDES A AND B
  11. VITAMIN B12 [Concomitant]
     Active Substance: CYANOCOBALAMIN
  12. KLONOPIN [Concomitant]
     Active Substance: CLONAZEPAM
  13. LEXAPRO [Concomitant]
     Active Substance: ESCITALOPRAM OXALATE
  14. LOPERMIDE [Concomitant]
  15. LORAZEPAM [Concomitant]
     Active Substance: LORAZEPAM
  16. METAMUCIL [Concomitant]
     Active Substance: PLANTAGO SEED
  17. OXYCODONE [Concomitant]
     Active Substance: OXYCODONE
  18. REXULTI [Concomitant]
     Active Substance: BREXPIPRAZOLE
  19. XTAMPZA [Concomitant]
     Active Substance: OXYCODONE

REACTIONS (2)
  - Palmar-plantar erythrodysaesthesia syndrome [None]
  - Therapy change [None]
